FAERS Safety Report 17949878 (Version 1)
Quarter: 2020Q2

REPORT INFORMATION
  Report Type: Spontaneous
  Country: US (occurrence: US)
  Receive Date: 20200626
  Receipt Date: 20200626
  Transmission Date: 20200714
  Serious: Yes (Other)
  Sender: FDA-Public Use
  Company Number: None

PATIENT
  Age: 61 Year
  Sex: Female
  Weight: 56.25 kg

DRUGS (10)
  1. VITAMIN A [Concomitant]
     Active Substance: VITAMIN A
  2. VITAMIN C [Concomitant]
     Active Substance: ASCORBIC ACID
  3. ZINC. [Concomitant]
     Active Substance: ZINC
  4. NIACINAMIDE [Concomitant]
     Active Substance: NIACINAMIDE
  5. VITAMIN B12 [Concomitant]
     Active Substance: CYANOCOBALAMIN
  6. VITAMIN D3 [Concomitant]
     Active Substance: CHOLECALCIFEROL
  7. PROBIOTICS [Concomitant]
     Active Substance: PROBIOTICS NOS
  8. SUPER ENZYMES [Concomitant]
  9. NP THYROID [Suspect]
     Active Substance: LEVOTHYROXINE\LIOTHYRONINE
     Indication: HYPOTHYROIDISM
     Dosage: ?          QUANTITY:30 TABLET(S);?
     Route: 048
     Dates: start: 20200322, end: 20200425
  10. FISH OIL [Concomitant]
     Active Substance: FISH OIL

REACTIONS (6)
  - Pain in jaw [None]
  - Chest pain [None]
  - Myocardial infarction [None]
  - Palpitations [None]
  - Diastolic dysfunction [None]
  - Recalled product administered [None]

NARRATIVE: CASE EVENT DATE: 20200323
